FAERS Safety Report 4737197-X (Version None)
Quarter: 2005Q3

REPORT INFORMATION
  Report Type: 
  Country: None (occurrence: None)
  Receive Date: 20050808
  Receipt Date: 20050419
  Transmission Date: 20060218
  Serious: Yes (Hospitalization, Other)
  Sender: FDA-Public Use
  Company Number: US-MERCK-0504USA03715

PATIENT
  Age: 73 Year
  Sex: Male
  Weight: 102 kg

DRUGS (29)
  1. VIOXX [Suspect]
     Indication: PAIN IN EXTREMITY
     Route: 048
     Dates: start: 20020814, end: 20040801
  2. ASPIRIN [Concomitant]
     Route: 065
  3. BACITRACIN [Concomitant]
     Route: 065
  4. CASANTHRANOL [Concomitant]
     Route: 065
  5. CEPHALEXIN [Concomitant]
     Route: 065
  6. CLOPIDOGREL BISULFATE [Concomitant]
     Route: 065
  7. ACETAMINOPHEN AND CODEINE [Concomitant]
     Route: 065
  8. ELECTROLYTES (UNSPECIFIED) [Concomitant]
     Route: 065
  9. CYCLOBENZAPRINE HYDROCHLORIDE [Concomitant]
     Route: 065
  10. DONEPEZIL HYDROCHLORIDE [Concomitant]
     Route: 065
  11. ETODOLAC [Concomitant]
     Route: 065
  12. FLUNISOLIDE [Concomitant]
     Route: 065
  13. GABAPENTIN [Concomitant]
     Route: 065
  14. ACETAMINOPHEN AND HYDROCODONE BITARTRATE [Concomitant]
     Route: 065
  15. ISOSORBIDE DINITRATE [Concomitant]
     Route: 065
  16. PRINIVIL [Concomitant]
     Route: 048
  17. OXYBUTYNIN CHLORIDE [Concomitant]
     Route: 065
  18. POTASSIUM CHLORIDE [Concomitant]
     Route: 065
  19. QUETIAPINE FUMARATE [Concomitant]
     Route: 065
  20. RANITIDINE HYDROCHLORIDE [Concomitant]
     Route: 065
  21. SALSALATE [Concomitant]
     Route: 065
  22. SENNOSIDES [Concomitant]
     Route: 065
  23. TERAZOSIN HYDROCHLORIDE [Concomitant]
     Route: 065
  24. [THERAPY UNSPECIFIED] [Concomitant]
     Route: 065
  25. AUGMENTIN '125' [Concomitant]
     Route: 065
  26. PLAVIX [Concomitant]
     Route: 065
  27. TROLAMINE SALICYLATE [Concomitant]
     Route: 065
  28. SALMETEROL [Concomitant]
     Route: 065
  29. SIMVASTATIN [Concomitant]
     Route: 065

REACTIONS (12)
  - ANGINA UNSTABLE [None]
  - AORTIC ANEURYSM RUPTURE [None]
  - BLOOD CHOLESTEROL INCREASED [None]
  - CAROTID ARTERY STENOSIS [None]
  - CONSTIPATION [None]
  - DEPRESSED MOOD [None]
  - DYSPNOEA [None]
  - HYPERTENSION [None]
  - MYOCARDIAL INFARCTION [None]
  - OEDEMA [None]
  - SKIN ULCER [None]
  - WHEEZING [None]
